FAERS Safety Report 9825318 (Version 1)
Quarter: 2014Q1

REPORT INFORMATION
  Report Type: Spontaneous
  Country: US (occurrence: None)
  Receive Date: 20140115
  Receipt Date: 20140115
  Transmission Date: 20141002
  Serious: Yes (Hospitalization)
  Sender: FDA-Public Use
  Company Number: None

PATIENT
  Age: 56 Year
  Sex: Female

DRUGS (3)
  1. RIBAVIRIN [Suspect]
     Indication: HEPATITIS C
     Dosage: 3 TABLETS A.M. , 2 TAB. PM, ABOVE DOSE
     Route: 048
     Dates: start: 20131220, end: 20140107
  2. SOVALDI [Concomitant]
  3. PEGASYS INJECTION [Concomitant]

REACTIONS (1)
  - Anaemia [None]
